FAERS Safety Report 5079864-7 (Version None)
Quarter: 2006Q3

REPORT INFORMATION
  Report Type: 
  Country: None (occurrence: None)
  Receive Date: 20060809
  Receipt Date: 20060727
  Transmission Date: 20061208
  Serious: Yes (Other)
  Sender: FDA-Public Use
  Company Number: 2006092791

PATIENT
  Sex: Female
  Weight: 108.8633 kg

DRUGS (3)
  1. AROMASIN [Suspect]
     Indication: OVARIAN CANCER
     Dates: start: 20040101
  2. LOTREL [Concomitant]
  3. HYDROCHLOROTHIAZIDE [Concomitant]

REACTIONS (4)
  - ATRIAL FIBRILLATION [None]
  - EXTRASYSTOLES [None]
  - HEART RATE DECREASED [None]
  - HEART RATE INCREASED [None]
